FAERS Safety Report 17809534 (Version 2)
Quarter: 2020Q2

REPORT INFORMATION
  Report Type: Spontaneous
  Country: US (occurrence: US)
  Receive Date: 20200520
  Receipt Date: 20200522
  Transmission Date: 20200714
  Serious: Yes (Other)
  Sender: FDA-Public Use
  Company Number: US-PFIZER INC-2020198501

PATIENT
  Age: 37 Year
  Sex: Female

DRUGS (1)
  1. ETHINYL ESTRADIOL/NORGESTREL [Suspect]
     Active Substance: ETHINYL ESTRADIOL\NORGESTREL
     Indication: ORAL CONTRACEPTION
     Dosage: UNK, DAILY (0.3-40 MG-UG)
     Route: 048

REACTIONS (2)
  - Hepatic fibrosis [Recovered/Resolved]
  - Venoocclusive liver disease [Recovered/Resolved]
